FAERS Safety Report 6052456-9 (Version None)
Quarter: 2009Q1

REPORT INFORMATION
  Report Type: 
  Country: None (occurrence: None)
  Receive Date: 20090126
  Receipt Date: 20090119
  Transmission Date: 20090719
  Serious: Yes (Other)
  Sender: FDA-Public Use
  Company Number: GB-GILEAD-2008-0019445

PATIENT
  Sex: Male
  Weight: 62 kg

DRUGS (8)
  1. ATRIPLA [Suspect]
     Indication: RETROVIRAL INFECTION
     Route: 048
     Dates: start: 20081003, end: 20081127
  2. MALARONE [Concomitant]
     Indication: MALARIA PROPHYLAXIS
  3. ABACAVIR SULFATE/LAMIVUDINE [Concomitant]
     Dates: start: 20060622, end: 20081002
  4. EFAVIRENZ [Concomitant]
     Dates: start: 20060622, end: 20081002
  5. TRUVADA [Concomitant]
     Dates: start: 20081127
  6. EFAVIRENZ [Concomitant]
     Dates: start: 20081127
  7. ESOMEPRAZOLE [Concomitant]
     Dates: start: 20080611
  8. FENOFIBRATE [Concomitant]
     Dates: start: 20081023

REACTIONS (8)
  - ABNORMAL BEHAVIOUR [None]
  - ABNORMAL DREAMS [None]
  - DEPRESSED MOOD [None]
  - DEPRESSION [None]
  - IMPATIENCE [None]
  - IRRITABILITY [None]
  - MOOD SWINGS [None]
  - POOR QUALITY SLEEP [None]
